FAERS Safety Report 6791104-7 (Version None)
Quarter: 2010Q2

REPORT INFORMATION
  Report Type: 
  Country: None (occurrence: None)
  Receive Date: 20100624
  Receipt Date: 20100615
  Transmission Date: 20101027
  Serious: Yes (Hospitalization)
  Sender: FDA-Public Use
  Company Number: GXKR2009IT13775

PATIENT
  Age: 76 Year
  Sex: Female

DRUGS (6)
  1. SERTRALINE HCL [Suspect]
     Indication: DEPRESSED MOOD
     Route: 065
  2. TRAMADOL HYDROCHLORIDE [Concomitant]
     Indication: ANALGESIC THERAPY
     Route: 065
  3. CALCIUM CARBONATE [Concomitant]
     Route: 065
  4. VITAMIN TAB [Concomitant]
     Route: 065
  5. BISPHOSPHONATES [Concomitant]
     Indication: SPINAL COMPRESSION FRACTURE
     Route: 065
  6. BISPHOSPHONATES [Concomitant]
     Indication: OSTEOPOROSIS

REACTIONS (9)
  - COUGH [None]
  - DYSPNOEA [None]
  - EOSINOPHILIA [None]
  - EOSINOPHILIC PNEUMONIA [None]
  - HYPOXIA [None]
  - LYMPHADENOPATHY [None]
  - PYREXIA [None]
  - RALES [None]
  - RESPIRATORY FAILURE [None]
